FAERS Safety Report 10337099 (Version 3)
Quarter: 2014Q4

REPORT INFORMATION
  Report Type: Report from Study
  Country: US (occurrence: US)
  Receive Date: 20140723
  Receipt Date: 20141209
  Transmission Date: 20150528
  Serious: Yes (Death, Hospitalization)
  Sender: FDA-Public Use
  Company Number: US-ACTELION-A-US2014-102359

PATIENT
  Age: 82 Year
  Sex: Female

DRUGS (5)
  1. REVATIO [Concomitant]
     Active Substance: SILDENAFIL CITRATE
  2. MACITENTAN [Suspect]
     Active Substance: MACITENTAN
     Indication: PULMONARY ARTERIAL HYPERTENSION
     Dosage: 10 MG, UNK
     Route: 048
     Dates: start: 20140508
  3. HEPARIN [Concomitant]
     Active Substance: HEPARIN SODIUM
  4. COUMADIN [Concomitant]
     Active Substance: WARFARIN SODIUM
  5. OXYGEN. [Concomitant]
     Active Substance: OXYGEN
     Dosage: 2 L/MIN CONTINUOUS
     Route: 045

REACTIONS (12)
  - Haematochezia [Recovering/Resolving]
  - Oesophageal ulcer [Unknown]
  - Duodenitis [Unknown]
  - Acquired oesophageal web [Unknown]
  - Haematocrit decreased [Recovering/Resolving]
  - Gastritis [Unknown]
  - Delirium [Recovered/Resolved]
  - Transfusion [Unknown]
  - Clostridium difficile infection [Unknown]
  - Gastrointestinal haemorrhage [Recovering/Resolving]
  - Death [Fatal]
  - Haemoglobin decreased [Recovering/Resolving]

NARRATIVE: CASE EVENT DATE: 20140520
